FAERS Safety Report 4779883-1 (Version None)
Quarter: 2005Q3

REPORT INFORMATION
  Report Type: 
  Country: None (occurrence: None)
  Receive Date: 20050914
  Receipt Date: 20050430
  Transmission Date: 20060218
  Serious: Yes (Hospitalization)
  Sender: FDA-Public Use
  Company Number: 163-20785-05050049

PATIENT
  Age: 65 Year
  Sex: Male
  Weight: 103.2 kg

DRUGS (25)
  1. THALOMID [Suspect]
     Indication: MULTIPLE MYELOMA
     Dosage: ORAL; 100 MG, DAILY, ORAL
     Route: 048
     Dates: start: 20050203, end: 20050228
  2. THALOMID [Suspect]
     Indication: MULTIPLE MYELOMA
     Dosage: ORAL; 100 MG, DAILY, ORAL
     Route: 048
     Dates: start: 20040904
  3. THALOMID [Suspect]
     Indication: MULTIPLE MYELOMA
     Dosage: ORAL; 100 MG, DAILY, ORAL
     Route: 048
     Dates: start: 20041004
  4. MELPHALAN (MELPHALAN) [Suspect]
     Indication: MULTIPLE MYELOMA
     Dosage: 400 MG, DAILY, INTRAVENOUS
     Route: 042
     Dates: start: 20050303, end: 20050303
  5. MELPHALAN (MELPHALAN) [Suspect]
     Indication: MULTIPLE MYELOMA
     Dosage: 400 MG, DAILY, INTRAVENOUS
     Route: 042
     Dates: start: 20041210
  6. DEXAMETHASONE [Suspect]
     Indication: MULTIPLE MYELOMA
     Dosage: UNKNOWN; 20 MG, DAILY DAYS 1-4 EVERY 21 DAYS, ORAL
     Route: 048
     Dates: start: 20040904
  7. DEXAMETHASONE [Suspect]
     Indication: MULTIPLE MYELOMA
     Dosage: UNKNOWN; 20 MG, DAILY DAYS 1-4 EVERY 21 DAYS, ORAL
     Route: 048
     Dates: start: 20041004
  8. DEXAMETHASONE [Suspect]
     Indication: MULTIPLE MYELOMA
     Dosage: UNKNOWN; 20 MG, DAILY DAYS 1-4 EVERY 21 DAYS, ORAL
     Route: 048
     Dates: start: 20050203
  9. BORTEZOMIB (BORTEZOMIB) [Suspect]
     Indication: MULTIPLE MYELOMA
     Dates: start: 20040904
  10. BORTEZOMIB (BORTEZOMIB) [Suspect]
     Indication: MULTIPLE MYELOMA
     Dates: start: 20041004
  11. CISPLATIN [Suspect]
     Indication: MULTIPLE MYELOMA
     Dates: start: 20040904
  12. CISPLATIN [Suspect]
     Indication: MULTIPLE MYELOMA
     Dates: start: 20041004
  13. ADRIAMYCIN PFS [Suspect]
     Indication: MULTIPLE MYELOMA
     Dates: start: 20040904
  14. ADRIAMYCIN PFS [Suspect]
     Indication: MULTIPLE MYELOMA
     Dates: start: 20041004
  15. CYCLOPHOSPHAMIDE [Suspect]
     Indication: MULTIPLE MYELOMA
     Dates: start: 20040904
  16. CYCLOPHOSPHAMIDE [Suspect]
     Indication: MULTIPLE MYELOMA
     Dates: start: 20041004
  17. ETOPOSIDE [Suspect]
     Indication: MULTIPLE MYELOMA
     Dates: start: 20040904
  18. ETOPOSIDE [Suspect]
     Indication: MULTIPLE MYELOMA
     Dates: start: 20041004
  19. TEQUIN [Concomitant]
  20. ACYCLOVIR [Concomitant]
  21. ZANTAC [Concomitant]
  22. ARANESP [Concomitant]
  23. CALCIUM GLUCONATE [Concomitant]
  24. MAGNESIUM [Concomitant]
  25. LOVENOX [Concomitant]

REACTIONS (5)
  - FAILURE TO THRIVE [None]
  - NEUROPATHY PERIPHERAL [None]
  - OEDEMA PERIPHERAL [None]
  - PNEUMONIA [None]
  - PYREXIA [None]
